FAERS Safety Report 17129775 (Version 5)
Quarter: 2020Q2

REPORT INFORMATION
  Report Type: Spontaneous
  Country: US (occurrence: US)
  Receive Date: 20191209
  Receipt Date: 20200506
  Transmission Date: 20200713
  Serious: Yes (Other)
  Sender: FDA-Public Use
  Company Number: NVSC2019US061512

PATIENT
  Age: 38 Year
  Sex: Female

DRUGS (13)
  1. AZATHIOPRINE. [Concomitant]
     Active Substance: AZATHIOPRINE
     Indication: IMMUNOSUPPRESSION
     Dosage: 75 MG, QD
     Route: 065
     Dates: start: 20191121
  2. PEPCID [Concomitant]
     Active Substance: FAMOTIDINE
     Indication: GASTROOESOPHAGEAL REFLUX DISEASE
     Dosage: 20 MG, QD
     Route: 065
     Dates: start: 20190130
  3. JUNEL FE 1/20 [Concomitant]
     Active Substance: ETHINYL ESTRADIOL\NORETHINDRONE ACETATE
     Indication: CONTRACEPTION
     Dosage: 1 DF, QD
     Route: 065
     Dates: start: 20180129, end: 20191121
  4. BACTRIM [Concomitant]
     Active Substance: SULFAMETHOXAZOLE\TRIMETHOPRIM
     Indication: PROPHYLAXIS
     Dosage: 1 DF, QD
     Route: 065
     Dates: start: 20190128, end: 20191121
  5. MYFORTIC [Suspect]
     Active Substance: MYCOPHENOLATE SODIUM
     Indication: TRANSPLANT
     Dosage: 720 MG, BID
     Route: 048
     Dates: start: 20190129, end: 20191121
  6. ERGOCALCIFEROL. [Concomitant]
     Active Substance: ERGOCALCIFEROL
     Indication: VITAMIN SUPPLEMENTATION
     Dosage: 50000 U, QW
     Route: 065
     Dates: start: 201908
  7. TACROLIMUS. [Suspect]
     Active Substance: TACROLIMUS
     Indication: TRANSPLANT
     Dosage: 4 MG, BID
     Route: 065
     Dates: start: 20190128
  8. METOPROLOL TARTRATE. [Suspect]
     Active Substance: METOPROLOL TARTRATE
     Indication: TACHYCARDIA
     Dosage: 25 MG, BID
     Route: 065
     Dates: start: 20180103, end: 20191121
  9. PREDNISONE. [Suspect]
     Active Substance: PREDNISONE
     Indication: TRANSPLANT
     Dosage: 5 MG, QD
     Route: 065
     Dates: start: 20190130
  10. ESTRADIOL. [Concomitant]
     Active Substance: ESTRADIOL
     Indication: CONTRACEPTION
     Dosage: 0.25 MG-25 MG
     Route: 065
     Dates: start: 20190210
  11. NORGESTIMATE [Concomitant]
     Active Substance: NORGESTIMATE
     Indication: CONTRACEPTION
     Dosage: 0.25 MG, QD
     Route: 065
  12. NORGESTIMATE [Concomitant]
     Active Substance: NORGESTIMATE
     Dosage: 3 MG, QD
     Route: 065
  13. AZATHIOPRINE. [Concomitant]
     Active Substance: AZATHIOPRINE
     Indication: RENAL TRANSPLANT

REACTIONS (2)
  - Abortion spontaneous [Recovered/Resolved]
  - Maternal exposure during pregnancy [Unknown]

NARRATIVE: CASE EVENT DATE: 20191121
